FAERS Safety Report 6027674-6 (Version None)
Quarter: 2009Q1

REPORT INFORMATION
  Report Type: 
  Country: None (occurrence: None)
  Receive Date: 20090105
  Receipt Date: 20081222
  Transmission Date: 20090719
  Serious: Yes (Hospitalization)
  Sender: FDA-Public Use
  Company Number: FR-CELGENEUS-056-CCAZA-08110934

PATIENT
  Sex: Male

DRUGS (16)
  1. VIDAZA [Suspect]
     Indication: MYELODYSPLASTIC SYNDROME
     Route: 058
     Dates: start: 20071001, end: 20080218
  2. VFEND [Concomitant]
     Route: 065
     Dates: start: 20071101, end: 20080912
  3. BARACLUDE [Concomitant]
     Route: 065
     Dates: start: 20070601
  4. ISOPTIN [Concomitant]
     Indication: TACHYCARDIA
     Route: 065
  5. SANDIMMUNE [Concomitant]
     Indication: PROPHYLAXIS AGAINST GRAFT VERSUS HOST DISEASE
     Route: 065
     Dates: start: 20080910, end: 20081017
  6. MYFORTIC [Concomitant]
     Indication: PROPHYLAXIS AGAINST GRAFT VERSUS HOST DISEASE
     Route: 065
     Dates: start: 20080911, end: 20081021
  7. AUGMENTIN [Concomitant]
     Route: 065
     Dates: start: 20080919, end: 20080922
  8. TAZOCILLINE [Concomitant]
     Route: 065
     Dates: start: 20080919, end: 20080922
  9. CIPROFLOXACIN HCL [Concomitant]
     Route: 051
     Dates: start: 20080904, end: 20080914
  10. CIPROFLOXACIN HCL [Concomitant]
     Route: 051
     Dates: start: 20080927, end: 20081014
  11. ROCEPHIN [Concomitant]
     Route: 065
     Dates: start: 20080904, end: 20080918
  12. FORTUM [Concomitant]
     Route: 065
     Dates: start: 20080924, end: 20080927
  13. TIENAM [Concomitant]
     Route: 065
     Dates: start: 20080927, end: 20080929
  14. TARGOCID [Concomitant]
     Route: 065
     Dates: start: 20081003, end: 20081005
  15. CANCIDAS [Concomitant]
     Route: 065
     Dates: start: 20080912
  16. NOXAFIL [Concomitant]
     Route: 065

REACTIONS (2)
  - NEUROPATHY PERIPHERAL [None]
  - PARAESTHESIA [None]
